FAERS Safety Report 5330183-0 (Version None)
Quarter: 2007Q2

REPORT INFORMATION
  Report Type: 
  Country: None (occurrence: None)
  Receive Date: 20070521
  Receipt Date: 20070511
  Transmission Date: 20071010
  Serious: Yes (Hospitalization)
  Sender: FDA-Public Use
  Company Number: SE-PFIZER INC-2007038230

PATIENT
  Sex: Male

DRUGS (9)
  1. ZOPICLONE [Suspect]
     Indication: SLEEP DISORDER
     Dosage: DAILY DOSE:5MG
     Route: 048
     Dates: start: 20060301, end: 20060401
  2. FRAGMIN [Suspect]
     Indication: PROPHYLAXIS
     Route: 058
  3. OMEPRAZOLE [Suspect]
     Dosage: DAILY DOSE:40MG
     Route: 048
     Dates: start: 20060301, end: 20060403
  4. PARACETAMOL [Suspect]
     Route: 048
  5. PROPIOMAZINE [Suspect]
     Indication: SLEEP DISORDER
     Dosage: DAILY DOSE:25MG
     Route: 048
     Dates: start: 20060301, end: 20060401
  6. HALOPERIDOL [Suspect]
     Indication: HALLUCINATION
     Dates: start: 20060301, end: 20060301
  7. DIAZEPAM [Concomitant]
     Dates: start: 20060301, end: 20060301
  8. ALL OTHER THERAPEUTIC PRODUCTS [Concomitant]
  9. METOPROLOL SUCCINATE [Concomitant]

REACTIONS (1)
  - ERYTHEMA MULTIFORME [None]
